FAERS Safety Report 5842769-5 (Version None)
Quarter: 2008Q3

REPORT INFORMATION
  Report Type: 
  Country: None (occurrence: None)
  Receive Date: 20080811
  Receipt Date: 20080730
  Transmission Date: 20090109
  Serious: Yes (Other)
  Sender: FDA-Public Use
  Company Number: 2008BI018648

PATIENT
  Age: 53 Year
  Sex: Female

DRUGS (1)
  1. TYSABRI [Suspect]
     Indication: MULTIPLE SCLEROSIS
     Dosage: 300 MG; QM; IV
     Route: 042
     Dates: start: 20080317

REACTIONS (10)
  - ANAEMIA [None]
  - BLOOD IRON DECREASED [None]
  - CONDITION AGGRAVATED [None]
  - FALL [None]
  - HAEMATOCHEZIA [None]
  - INFLUENZA [None]
  - MEMORY IMPAIRMENT [None]
  - MULTIPLE SCLEROSIS [None]
  - PELVIC FRACTURE [None]
  - WEIGHT INCREASED [None]
